FAERS Safety Report 22066186 (Version 1)
Quarter: 2023Q1

REPORT INFORMATION
  Report Type: Spontaneous
  Country: US (occurrence: None)
  Receive Date: 20230306
  Receipt Date: 20230306
  Transmission Date: 20230417
  Serious: Yes (Other)
  Sender: FDA-Public Use
  Company Number: None

PATIENT
  Age: 38 Year
  Sex: Female
  Weight: 87.3 kg

DRUGS (4)
  1. ARESTIN [Suspect]
     Active Substance: MINOCYCLINE HYDROCHLORIDE
     Indication: Gingivitis
     Route: 058
     Dates: start: 20230301
  2. VITAMIN D [Concomitant]
     Active Substance: VITAMIN D NOS
  3. VITAMINS [Concomitant]
     Active Substance: VITAMINS
  4. herbal teas (dandelion and nettle) [Concomitant]

REACTIONS (10)
  - Bone pain [None]
  - Arthralgia [None]
  - Muscle tightness [None]
  - Paraesthesia [None]
  - Gait disturbance [None]
  - Pain in extremity [None]
  - Pain [None]
  - Arthralgia [None]
  - Arthralgia [None]
  - Headache [None]

NARRATIVE: CASE EVENT DATE: 20230304
